FAERS Safety Report 4328673-2 (Version None)
Quarter: 2004Q1

REPORT INFORMATION
  Report Type: 
  Country: None (occurrence: None)
  Receive Date: 20040325
  Receipt Date: 20040318
  Transmission Date: 20041129
  Serious: Yes (Hospitalization)
  Sender: FDA-Public Use
  Company Number: 2004-00916

PATIENT
  Age: 69 Year
  Sex: Male

DRUGS (1)
  1. IMMUCYST (BCG - IT (CONNAUGHT), AVENTIS PASTEUR LTD. [Suspect]
     Indication: BLADDER CANCER
     Dosage: B.IN., BLADDER
     Route: 043
     Dates: start: 20040305

REACTIONS (9)
  - ASTHENIA [None]
  - C-REACTIVE PROTEIN INCREASED [None]
  - CYTOLYTIC HEPATITIS [None]
  - HEPATIC ENZYME INCREASED [None]
  - LEUKOPENIA [None]
  - PLATELET COUNT DECREASED [None]
  - PLATELET DISORDER [None]
  - PLEURAL DISORDER [None]
  - PYREXIA [None]
